FAERS Safety Report 7472611-0 (Version None)
Quarter: 2011Q1

REPORT INFORMATION
  Report Type: 
  Country: None (occurrence: None)
  Receive Date: 20110302
  Receipt Date: 20101215
  Transmission Date: 20110831
  Serious: Yes (Other)
  Sender: FDA-Public Use
  Company Number: 163-21880-10122339

PATIENT

DRUGS (3)
  1. REVLIMID [Suspect]
     Indication: MULTIPLE MYELOMA
     Dosage: 25 MG, DAILY ON DAYS 1-21 OF A 28 DAY CYCLE, PO
     Route: 048
     Dates: start: 20071001
  2. CYCLOPHOSPHAMIDE [Suspect]
     Indication: MULTIPLE MYELOMA
     Dosage: 50 MG, BID DAYS 1-21 OF 28 DAY CYCLE
     Dates: start: 20071001
  3. PREDNISONE [Suspect]
     Indication: MULTIPLE MYELOMA
     Dosage: 50 MG, QOD
     Dates: start: 20071001

REACTIONS (7)
  - PERIPHERAL SENSORY NEUROPATHY [None]
  - PRURITUS [None]
  - TUMOUR LYSIS SYNDROME [None]
  - OEDEMA PERIPHERAL [None]
  - HYPERGLYCAEMIA [None]
  - HYPOKALAEMIA [None]
  - CONSTIPATION [None]
